FAERS Safety Report 4500249-3 (Version None)
Quarter: 2004Q4

REPORT INFORMATION
  Report Type: 
  Country: None (occurrence: None)
  Receive Date: 20041109
  Receipt Date: 20041029
  Transmission Date: 20050328
  Serious: Yes (Hospitalization)
  Sender: FDA-Public Use
  Company Number: 2004227998US

PATIENT
  Age: 67 Year
  Sex: Female
  Weight: 61.7 kg

DRUGS (4)
  1. CAMPTOSAR [Suspect]
     Indication: SMALL CELL LUNG CANCER LIMITED STAGE
     Dosage: 103 MG, CYCLE 1, IV
     Route: 042
     Dates: start: 20040804
  2. CISPLATIN [Suspect]
     Indication: SMALL CELL LUNG CANCER LIMITED STAGE
     Dosage: 86 MG, CYCLE , 1, IV
     Route: 042
     Dates: start: 20040804
  3. CLINICAL TRIAL PROCEDURE (CLINICAL TRIAL  PROCEDURE) [Suspect]
     Indication: SMALL CELL LUNG CANCER LIMITED STAGE
     Dates: start: 20040804
  4. ANTINAUSEA MEDICATIONS [Suspect]

REACTIONS (5)
  - COMPUTERISED TOMOGRAM ABDOMEN ABNORMAL [None]
  - CONSTIPATION [None]
  - INFLAMMATION [None]
  - NAUSEA [None]
  - VOMITING [None]
